FAERS Safety Report 4760067-8 (Version None)
Quarter: 2005Q3

REPORT INFORMATION
  Report Type: 
  Country: None (occurrence: None)
  Receive Date: 20050902
  Receipt Date: 20050418
  Transmission Date: 20060218
  Serious: Yes (Other)
  Sender: FDA-Public Use
  Company Number: DE-RB-1496-2005

PATIENT
  Age: 30 Year
  Sex: Male
  Weight: 71 kg

DRUGS (1)
  1. BUPRENORPHINE HCL [Suspect]
     Indication: DRUG DEPENDENCE
     Route: 060
     Dates: start: 20040415, end: 20050329

REACTIONS (5)
  - ANOREXIA [None]
  - DEPRESSION [None]
  - MALAISE [None]
  - RESTLESSNESS [None]
  - WEIGHT DECREASED [None]
